FAERS Safety Report 15755122 (Version 1)
Quarter: 2018Q4

REPORT INFORMATION
  Report Type: Report from Study
  Country: CN (occurrence: CN)
  Receive Date: 20181224
  Receipt Date: 20181224
  Transmission Date: 20190205
  Serious: Yes (Other)
  Sender: FDA-Public Use
  Company Number: CN-ROCHE-2231101

PATIENT

DRUGS (2)
  1. CAPECITABINE. [Suspect]
     Active Substance: CAPECITABINE
     Indication: COLORECTAL CANCER
     Dosage: DURATION OF 2 WEEKS AND SUSPENDED FOR 1 WEEK
     Route: 048
  2. OXALIPLATIN. [Suspect]
     Active Substance: OXALIPLATIN
     Indication: COLORECTAL CANCER
     Dosage: 21 DAYS AS ONE CYCLE
     Route: 041

REACTIONS (9)
  - White blood cell count decreased [Unknown]
  - Neutrophil count decreased [Unknown]
  - Hepatic function abnormal [Unknown]
  - Nausea [Unknown]
  - Renal impairment [Unknown]
  - Platelet count decreased [Unknown]
  - Alopecia [Unknown]
  - Haemoglobin decreased [Unknown]
  - Vomiting [Unknown]
